FAERS Safety Report 22029355 (Version 6)
Quarter: 2023Q4

REPORT INFORMATION
  Report Type: Report from Study
  Country: JP (occurrence: JP)
  Receive Date: 20230223
  Receipt Date: 20231129
  Transmission Date: 20240110
  Serious: Yes (Hospitalization, Other)
  Sender: FDA-Public Use
  Company Number: JP-MYLANLABS-2023M1020278

PATIENT
  Age: 54 Year
  Sex: Male
  Weight: 41.7 kg

DRUGS (17)
  1. ADALIMUMAB [Suspect]
     Active Substance: ADALIMUMAB\ISOPROPYL ALCOHOL
     Indication: Crohn^s disease
     Dosage: 160 MILLIGRAM, Q2W
     Route: 058
     Dates: start: 20221007, end: 20221020
  2. ADALIMUMAB [Suspect]
     Active Substance: ADALIMUMAB\ISOPROPYL ALCOHOL
     Dosage: 80 MILLIGRAM, Q2W
     Route: 058
     Dates: start: 20221021, end: 20221030
  3. ADALIMUMAB [Suspect]
     Active Substance: ADALIMUMAB\ISOPROPYL ALCOHOL
     Dosage: 40 MILLIGRAM, Q2W
     Route: 058
     Dates: start: 20221031, end: 20230123
  4. FLAGYL [Concomitant]
     Active Substance: METRONIDAZOLE\METRONIDAZOLE HYDROCHLORIDE
     Dosage: 750 MILLIGRAM, QD (FROM 30-NOV-2022 TO 06-DEC-2022)
     Route: 048
     Dates: start: 20221130, end: 20221206
  5. LEVOFLOXACIN [Concomitant]
     Active Substance: LEVOFLOXACIN
     Dosage: 500 MILLIGRAM, QD (FROM 30-NOV-2022 TO 13-DEC-2022)
     Route: 048
     Dates: start: 20221130, end: 20221213
  6. SENNOSIDES [Concomitant]
     Active Substance: SENNOSIDES
     Dosage: 12 MILLIGRAM (AS NEEDED)
     Route: 048
  7. Azunol [Concomitant]
     Dosage: UNK
     Route: 065
  8. MAGNESIUM OXIDE [Concomitant]
     Active Substance: MAGNESIUM OXIDE
     Dosage: 990 MILLIGRAM, QD
     Route: 048
     Dates: start: 20221015, end: 20221019
  9. MAGNESIUM OXIDE [Concomitant]
     Active Substance: MAGNESIUM OXIDE
     Dosage: 660 MILLIGRAM, QD
     Route: 048
     Dates: start: 20221020, end: 20230215
  10. MIYA-BM [Concomitant]
     Active Substance: CLOSTRIDIUM BUTYRICUM SPORES STRAIN M-55
     Dosage: 3 GRAM, QD (SINCE 24-JAN-2023)
     Route: 048
     Dates: start: 20230124
  11. MEROPENEM [Concomitant]
     Active Substance: MEROPENEM
     Dosage: 0.5 MILLIGRAM, QD ( FROM 23-JAN-2023 TO 10-FEB-2023)
     Route: 042
     Dates: start: 20230123, end: 20230210
  12. CIPROFLOXACIN [Concomitant]
     Active Substance: CIPROFLOXACIN
     Dosage: 400 MILLIGRAM, QD (TREATMENT DURATION: FROM 23-FEB-2023 TO 18-MAR-2023))
     Route: 048
     Dates: start: 20230223, end: 20230318
  13. LOXOPROFEN [Concomitant]
     Active Substance: LOXOPROFEN
     Dosage: 60 MILLIGRAM, AS-NEEDED (ONGOING SINCE 09-FEB-2023)
     Route: 048
     Dates: start: 20230209
  14. CELECOXIB [Concomitant]
     Active Substance: CELECOXIB
     Dosage: 200 MILLIGRAM, QD (ONGOING SINCE 20-FEB-2023))
     Route: 048
     Dates: start: 20230220
  15. DIFLUCORTOLONE VALERATE\LIDOCAINE [Concomitant]
     Active Substance: DIFLUCORTOLONE VALERATE\LIDOCAINE
     Dosage: UNK (ONGOING SINCE 13-MAR-2023)
     Route: 065
     Dates: start: 20230313
  16. LIDOCAINE\TRIBENOSIDE [Concomitant]
     Active Substance: LIDOCAINE\TRIBENOSIDE
     Dosage: UNK, QD (DAILY  DOSE: 2 PRODUCTS
     Route: 065
     Dates: start: 20230314
  17. METRONIDAZOLE [Concomitant]
     Active Substance: METRONIDAZOLE
     Dosage: UNK
     Route: 065
     Dates: start: 20221130, end: 20221206

REACTIONS (3)
  - Anal abscess [Recovering/Resolving]
  - COVID-19 [Recovered/Resolved]
  - Inappropriate schedule of product administration [Unknown]

NARRATIVE: CASE EVENT DATE: 20221031
